FAERS Safety Report 7177223-4 (Version None)
Quarter: 2010Q4

REPORT INFORMATION
  Report Type: 
  Country: None (occurrence: None)
  Receive Date: 20101220
  Receipt Date: 20101214
  Transmission Date: 20110411
  Serious: Yes (Other)
  Sender: FDA-Public Use
  Company Number: IE-PFIZER INC-2010162328

PATIENT
  Age: 12 Year
  Sex: Male
  Weight: 43.05 kg

DRUGS (6)
  1. BENEFIX [Suspect]
     Indication: ORCHIDOPEXY
     Dosage: 4000 IU, UNK
     Dates: start: 20101121, end: 20101121
  2. BENEFIX [Suspect]
     Dosage: 2000 IU, UNK
     Dates: start: 20101122, end: 20101122
  3. BENEFIX [Suspect]
     Dosage: 2000 IU, UNK
     Route: 042
     Dates: start: 20101123, end: 20101123
  4. DUPHALAC [Concomitant]
     Indication: CONSTIPATION
     Dosage: 10 ML, 2X/DAY
     Route: 048
     Dates: start: 20101122, end: 20101123
  5. PARACETAMOL [Concomitant]
     Indication: PAIN
     Dosage: 600 MG, EVERY 6 HRS
     Route: 048
     Dates: start: 20101121, end: 20101123
  6. CODEINE [Concomitant]
     Indication: PAIN
     Dosage: 30 MG, EVERY 4-6 HRS
     Route: 048
     Dates: start: 20101121, end: 20101123

REACTIONS (5)
  - CATHETER SITE PAIN [None]
  - HYPERSENSITIVITY [None]
  - NAUSEA [None]
  - RASH [None]
  - VOMITING [None]
